FAERS Safety Report 5985948-9 (Version None)
Quarter: 2008Q4

REPORT INFORMATION
  Report Type: 
  Country: None (occurrence: None)
  Receive Date: 20081205
  Receipt Date: 20081205
  Transmission Date: 20090506
  Serious: Yes (Hospitalization)
  Sender: FDA-Public Use
  Company Number: None

PATIENT
  Age: 27 Year
  Sex: Male

DRUGS (1)
  1. CABERGOLINE [Suspect]
     Indication: PROLACTINOMA
     Dosage: 1.5 MG/WEEK

REACTIONS (5)
  - CONDITION AGGRAVATED [None]
  - PITUITARY HAEMORRHAGE [None]
  - TUMOUR HAEMORRHAGE [None]
  - VISUAL ACUITY REDUCED [None]
  - VISUAL PATHWAY DISORDER [None]
